FAERS Safety Report 5843506-0 (Version None)
Quarter: 2008Q3

REPORT INFORMATION
  Report Type: 
  Country: None (occurrence: None)
  Receive Date: 20080813
  Receipt Date: 20080805
  Transmission Date: 20090109
  Serious: Yes (Hospitalization, Other)
  Sender: FDA-Public Use
  Company Number: GBWYE365424JAN05

PATIENT
  Age: 15 Year
  Sex: Female

DRUGS (3)
  1. IBUPROFEN TABLETS [Suspect]
     Indication: PYREXIA
     Route: 048
  2. CEFUROXIME [Concomitant]
     Indication: LOBAR PNEUMONIA
     Dosage: UNKNOWN
     Route: 042
  3. ACETAMINOPHEN [Interacting]
     Indication: PYREXIA
     Route: 048

REACTIONS (2)
  - DRUG INTERACTION [None]
  - HYPOTHERMIA [None]
